FAERS Safety Report 9460293 (Version 2)
Quarter: 2013Q3

REPORT INFORMATION
  Report Type: Spontaneous
  Country: US (occurrence: US)
  Receive Date: 20130815
  Receipt Date: 20130918
  Transmission Date: 20140515
  Serious: Yes (Hospitalization, Other)
  Sender: FDA-Public Use
  Company Number: US-MERCK-1308USA005629

PATIENT
  Age: 67 Year
  Sex: Female

DRUGS (2)
  1. SINEMET [Suspect]
     Indication: PARKINSON^S DISEASE
     Dosage: 1.5 TABLETS, QID
     Route: 048
  2. REQUIP [Concomitant]

REACTIONS (5)
  - Mental status changes [Unknown]
  - Endotracheal intubation [Unknown]
  - Gastrointestinal tube insertion [Not Recovered/Not Resolved]
  - Respiratory disorder [Unknown]
  - Wrong technique in drug usage process [Unknown]
